FAERS Safety Report 6810202-2 (Version None)
Quarter: 2010Q2

REPORT INFORMATION
  Report Type: 
  Country: None (occurrence: None)
  Receive Date: 20100630
  Receipt Date: 20100623
  Transmission Date: 20101027
  Serious: Yes (Hospitalization)
  Sender: FDA-Public Use
  Company Number: FR-KINGPHARMUSA00001-K201000433

PATIENT
  Age: 77 Year
  Sex: Male

DRUGS (6)
  1. ALTACE [Suspect]
     Indication: HYPERTENSION
     Dosage: 5 MG, BID
     Route: 048
     Dates: start: 20000101, end: 20100308
  2. ALTACE [Suspect]
     Dosage: 2.5 MG, QD
     Route: 048
     Dates: start: 20100312
  3. ARCOXIA [Suspect]
     Indication: ARTHRALGIA
     Dosage: 90 MG, QD
     Route: 048
     Dates: start: 20011018, end: 20100309
  4. OXYBUTYNIN CHLORIDE [Concomitant]
     Dosage: UNK
     Dates: start: 20020101
  5. ZYPREXA [Concomitant]
     Dosage: UNK
     Dates: start: 20100101
  6. CITALOPRAM HYDROBROMIDE [Concomitant]
     Dosage: UNK
     Dates: start: 20100101

REACTIONS (9)
  - BLOOD CREATININE INCREASED [None]
  - CONFUSIONAL STATE [None]
  - DEHYDRATION [None]
  - DISORIENTATION [None]
  - DRUG INTERACTION [None]
  - MANIA [None]
  - PERSONALITY CHANGE [None]
  - RENAL DISORDER [None]
  - RENAL FAILURE ACUTE [None]
